FAERS Safety Report 12700875 (Version 1)
Quarter: 2016Q3

REPORT INFORMATION
  Report Type: Spontaneous
  Country: US (occurrence: US)
  Receive Date: 20160830
  Receipt Date: 20160830
  Transmission Date: 20161109
  Serious: Yes (Hospitalization)
  Sender: FDA-Public Use
  Company Number: US-ASTRAZENECA-2016SE90232

PATIENT
  Sex: Male
  Weight: 59.9 kg

DRUGS (9)
  1. ASPIRIN. [Concomitant]
     Active Substance: ASPIRIN
     Route: 048
  2. ZOLPIDEM [Concomitant]
     Active Substance: ZOLPIDEM\ZOLPIDEM TARTRATE
     Indication: NERVOUS SYSTEM DISORDER
     Dates: start: 201608
  3. LORTAB [Concomitant]
     Active Substance: ACETAMINOPHEN\HYDROCODONE BITARTRATE
     Indication: RESTLESS LEGS SYNDROME
  4. LEVOTHYROXINE. [Concomitant]
     Active Substance: LEVOTHYROXINE
     Indication: THYROID DISORDER
  5. CLONAZEPAM. [Concomitant]
     Active Substance: CLONAZEPAM
     Indication: RESTLESS LEGS SYNDROME
  6. BRILINTA [Suspect]
     Active Substance: TICAGRELOR
     Indication: MYOCARDIAL INFARCTION
     Route: 048
     Dates: start: 201606
  7. BRILINTA [Suspect]
     Active Substance: TICAGRELOR
     Indication: ACUTE CORONARY SYNDROME
     Route: 048
     Dates: start: 201606
  8. ISOSORBIDE. [Suspect]
     Active Substance: ISOSORBIDE
     Indication: CARDIAC DISORDER
     Route: 048
  9. ZOLPIDEM [Concomitant]
     Active Substance: ZOLPIDEM\ZOLPIDEM TARTRATE
     Indication: MUSCLE SPASMS
     Dates: start: 201608

REACTIONS (14)
  - Malaise [Unknown]
  - Weight decreased [Unknown]
  - Muscle spasms [Unknown]
  - Abdominal discomfort [Unknown]
  - Feeling abnormal [Unknown]
  - Sciatica [Unknown]
  - Feeling of body temperature change [Unknown]
  - Activities of daily living impaired [Unknown]
  - Adverse drug reaction [Unknown]
  - Restless legs syndrome [Unknown]
  - Thyroid disorder [Unknown]
  - Cardiac disorder [Unknown]
  - Thyroid function test abnormal [Unknown]
  - Hypophagia [Unknown]
